FAERS Safety Report 15253158 (Version 2)
Quarter: 2018Q4

REPORT INFORMATION
  Report Type: Spontaneous
  Country: US (occurrence: US)
  Receive Date: 20180807
  Receipt Date: 20181102
  Transmission Date: 20190204
  Serious: No
  Sender: FDA-Public Use
  Company Number: US-RADIUS HEALTH INC.-2018US001600

PATIENT
  Sex: Female
  Weight: 49 kg

DRUGS (4)
  1. CALCIUM [Concomitant]
     Active Substance: CALCIUM
     Indication: PRODUCT USED FOR UNKNOWN INDICATION
  2. DAILY VITAMINS [Concomitant]
     Indication: PRODUCT USED FOR UNKNOWN INDICATION
  3. TYMLOS [Suspect]
     Active Substance: ABALOPARATIDE
     Indication: OSTEOPOROSIS POSTMENOPAUSAL
     Dosage: UNK
     Dates: start: 20180101
  4. TYMLOS [Suspect]
     Active Substance: ABALOPARATIDE
     Dosage: UNK
     Dates: start: 20170801

REACTIONS (9)
  - Body height decreased [Unknown]
  - Weight increased [Unknown]
  - Ankle fracture [Unknown]
  - Memory impairment [Unknown]
  - Product dose omission [Unknown]
  - Fibromyalgia [Unknown]
  - Kyphosis [Unknown]
  - Malaise [Unknown]
  - Pruritus [Unknown]
